FAERS Safety Report 9495312 (Version 1)
Quarter: 2013Q3

REPORT INFORMATION
  Report Type: Spontaneous
  Country: ZA (occurrence: ZA)
  Receive Date: 20130903
  Receipt Date: 20130903
  Transmission Date: 20140515
  Serious: Yes (Other)
  Sender: FDA-Public Use
  Company Number: ZA-PFIZER INC-2013252024

PATIENT
  Sex: 0
  Weight: 1.38 kg

DRUGS (9)
  1. DOXORUBICIN HCL [Suspect]
     Indication: KAPOSI^S SARCOMA AIDS RELATED
     Dosage: 4 CYCLES
     Route: 064
  2. VINCRISTINE SULFATE [Suspect]
     Indication: KAPOSI^S SARCOMA AIDS RELATED
     Dosage: 4 CYCLES
     Route: 064
  3. CLARITHROMYCIN [Concomitant]
     Indication: ANTIBIOTIC THERAPY
     Route: 064
  4. TENOFOVIR [Concomitant]
     Indication: HIV INFECTION
     Route: 064
  5. EFAVIRENZ [Concomitant]
     Indication: HIV INFECTION
     Route: 064
  6. LAMIVUDINE [Concomitant]
     Indication: HIV INFECTION
     Route: 064
  7. RIFAFOUR [Concomitant]
     Indication: TUBERCULOSIS
     Route: 064
  8. SULFAMETHOXAZOLE W/TRIMETHOPRIM [Concomitant]
     Indication: ANTIFUNGAL PROPHYLAXIS
     Route: 064
  9. HEPARIN [Concomitant]
     Route: 064

REACTIONS (2)
  - Maternal exposure during pregnancy [Unknown]
  - Microcephaly [Unknown]
